FAERS Safety Report 11342052 (Version 1)
Quarter: 2015Q3

REPORT INFORMATION
  Report Type: Spontaneous
  Country: MX (occurrence: MX)
  Receive Date: 20150805
  Receipt Date: 20150805
  Transmission Date: 20151125
  Serious: Yes (Other)
  Sender: FDA-Public Use
  Company Number: MX-ASTRAZENECA-2015SE74894

PATIENT

DRUGS (1)
  1. FORXIGA [Suspect]
     Active Substance: DAPAGLIFLOZIN
     Route: 048

REACTIONS (1)
  - Lactic acidosis [Unknown]
